FAERS Safety Report 4695408-3 (Version None)
Quarter: 2005Q2

REPORT INFORMATION
  Report Type: 
  Country: None (occurrence: None)
  Receive Date: 20050621
  Receipt Date: 20050609
  Transmission Date: 20051028
  Serious: Yes (Other)
  Sender: FDA-Public Use
  Company Number: FR-SOLVAY-00205001996

PATIENT
  Age: 580 Month
  Sex: Male
  Weight: 92 kg

DRUGS (2)
  1. COVERSYL [Interacting]
     Indication: HYPERTENSION
     Dosage: DAILY DOSE: 4 MILLIGRAM(S)
     Route: 048
     Dates: start: 20040901, end: 20041101
  2. ZOCOR [Suspect]
     Indication: ILL-DEFINED DISORDER
     Dosage: DAILY DOSE: 40 MILLIGRAM(S)
     Route: 048
     Dates: start: 20040901, end: 20041101

REACTIONS (1)
  - HEPATITIS [None]
